FAERS Safety Report 17857384 (Version 5)
Quarter: 2021Q1

REPORT INFORMATION
  Report Type: Report from Study
  Country: JP (occurrence: JP)
  Receive Date: 20200603
  Receipt Date: 20210330
  Transmission Date: 20210419
  Serious: Yes (Other)
  Sender: FDA-Public Use
  Company Number: JP-BRISTOL-MYERS SQUIBB COMPANY-BMS-2020-042994

PATIENT
  Age: 9 Year
  Sex: Female
  Weight: 25 kg

DRUGS (37)
  1. ABATACEPT [Suspect]
     Active Substance: ABATACEPT
     Dosage: 10 MILLIGRAM/KILOGRAM
     Route: 041
     Dates: start: 20181227, end: 20181227
  2. ABATACEPT [Suspect]
     Active Substance: ABATACEPT
     Dosage: 10 MILLIGRAM/KILOGRAM
     Route: 041
     Dates: start: 20190222, end: 20190222
  3. ABATACEPT [Suspect]
     Active Substance: ABATACEPT
     Dosage: 10 MILLIGRAM/KILOGRAM
     Route: 041
     Dates: start: 20190524, end: 20190524
  4. ABATACEPT [Suspect]
     Active Substance: ABATACEPT
     Dosage: 10 MILLIGRAM/KILOGRAM
     Route: 041
     Dates: start: 20190617, end: 20190617
  5. PREDNISOLONE. [Suspect]
     Active Substance: PREDNISOLONE
     Dosage: 6 MILLIGRAM, QD
     Route: 048
     Dates: start: 20180707, end: 20180809
  6. PREDNISOLONE. [Suspect]
     Active Substance: PREDNISOLONE
     Dosage: 4 MILLIGRAM, QD
     Route: 048
     Dates: start: 20180915, end: 20181019
  7. PREDNISOLONE. [Suspect]
     Active Substance: PREDNISOLONE
     Dosage: 3 MILLIGRAM, QD
     Route: 048
     Dates: start: 20181020, end: 20181122
  8. PREDNISOLONE. [Suspect]
     Active Substance: PREDNISOLONE
     Dosage: 2 MILLIGRAM, QD
     Route: 048
     Dates: start: 20181123, end: 20181227
  9. PREDNISOLONE. [Suspect]
     Active Substance: PREDNISOLONE
     Dosage: 5 MILLIGRAM, QD
     Route: 048
     Dates: start: 20190223, end: 20190322
  10. FAMOTIDINE. [Concomitant]
     Active Substance: FAMOTIDINE
     Indication: PROPHYLAXIS
     Dosage: 5 MILLIGRAM, QD
     Route: 048
     Dates: end: 20180814
  11. ABATACEPT [Suspect]
     Active Substance: ABATACEPT
     Indication: JUVENILE IDIOPATHIC ARTHRITIS
     Dosage: 10 MILLIGRAM/KILOGRAM
     Route: 041
     Dates: start: 20180507, end: 20180507
  12. ABATACEPT [Suspect]
     Active Substance: ABATACEPT
     Dosage: 10 MILLIGRAM/KILOGRAM
     Route: 041
     Dates: start: 20180809, end: 20180809
  13. ABATACEPT [Suspect]
     Active Substance: ABATACEPT
     Dosage: 10 MILLIGRAM/KILOGRAM
     Route: 041
     Dates: start: 20181019, end: 20181019
  14. ABATACEPT [Suspect]
     Active Substance: ABATACEPT
     Dosage: 10 MILLIGRAM/KILOGRAM
     Route: 041
     Dates: start: 20181122, end: 20181122
  15. ABATACEPT [Suspect]
     Active Substance: ABATACEPT
     Dosage: 10 MILLIGRAM/KILOGRAM
     Route: 041
     Dates: start: 20190322, end: 20190322
  16. PREDNISOLONE. [Suspect]
     Active Substance: PREDNISOLONE
     Dosage: 8 MILLIGRAM, QD
     Route: 048
     Dates: start: 20180609, end: 20180706
  17. PREDNISOLONE. [Suspect]
     Active Substance: PREDNISOLONE
     Dosage: 1.5 MILLIGRAM, QD
     Route: 048
     Dates: start: 20181228, end: 20190222
  18. ABATACEPT [Suspect]
     Active Substance: ABATACEPT
     Dosage: 10 MILLIGRAM/KILOGRAM
     Route: 041
     Dates: start: 20180706, end: 20180706
  19. ABATACEPT [Suspect]
     Active Substance: ABATACEPT
     Dosage: 10 MILLIGRAM/KILOGRAM
     Route: 041
     Dates: start: 20190422, end: 20190422
  20. PREDNISOLONE. [Suspect]
     Active Substance: PREDNISOLONE
     Dosage: 25 MILLIGRAM, QD
     Route: 048
     Dates: start: 20190423, end: 20190502
  21. PREDNISOLONE. [Suspect]
     Active Substance: PREDNISOLONE
     Dosage: 20 MILLIGRAM, QD
     Route: 048
     Dates: start: 20190503, end: 20190512
  22. PREDNISOLONE. [Suspect]
     Active Substance: PREDNISOLONE
     Indication: JUVENILE IDIOPATHIC ARTHRITIS
     Dosage: 12 MILLIGRAM, QD
     Route: 048
     Dates: end: 20180525
  23. PREDNISOLONE. [Suspect]
     Active Substance: PREDNISOLONE
     Indication: MYOSITIS
     Dosage: 10 MILLIGRAM, QD
     Route: 048
     Dates: start: 20180526, end: 20180608
  24. PREDNISOLONE. [Suspect]
     Active Substance: PREDNISOLONE
     Dosage: 5 MILLIGRAM, QD
     Route: 048
     Dates: start: 20180810, end: 20180914
  25. PROGRAF [Suspect]
     Active Substance: TACROLIMUS
     Indication: MYOSITIS
     Dosage: 3 MILLIGRAM, QD
     Route: 048
     Dates: start: 20190423, end: 20190924
  26. INCREMIN C IRON [Concomitant]
     Indication: PRODUCT USED FOR UNKNOWN INDICATION
     Dosage: 9 MILLILITER, QD
     Route: 048
     Dates: start: 20180507, end: 20180607
  27. ABATACEPT [Suspect]
     Active Substance: ABATACEPT
     Dosage: 10 MILLIGRAM/KILOGRAM
     Route: 041
     Dates: start: 20180525, end: 20180525
  28. PROGRAF [Suspect]
     Active Substance: TACROLIMUS
     Indication: JUVENILE IDIOPATHIC ARTHRITIS
     Dosage: 1.8 MILLIGRAM, QD
     Route: 048
     Dates: end: 20190422
  29. NAIXAN [NAPROXEN SODIUM] [Concomitant]
     Indication: JUVENILE IDIOPATHIC ARTHRITIS
     Dosage: 200 MILLIGRAM, QD
     Route: 048
     Dates: end: 20180809
  30. CALFINA [ALFACALCIDOL] [Concomitant]
     Active Substance: ALFACALCIDOL
     Indication: PROPHYLAXIS
     Dosage: 0.5 MICROGRAM, QD
     Route: 048
     Dates: start: 20180915, end: 20201113
  31. ABATACEPT [Suspect]
     Active Substance: ABATACEPT
     Dosage: 10 MILLIGRAM/KILOGRAM
     Route: 041
     Dates: start: 20190124, end: 20190124
  32. PREDNISOLONE. [Suspect]
     Active Substance: PREDNISOLONE
     Dosage: 15 MILLIGRAM, QD
     Route: 048
     Dates: start: 20190513, end: 20190617
  33. ABATACEPT [Suspect]
     Active Substance: ABATACEPT
     Dosage: 10 MILLIGRAM/KILOGRAM
     Route: 041
     Dates: start: 20180608, end: 20180608
  34. ABATACEPT [Suspect]
     Active Substance: ABATACEPT
     Dosage: 10 MILLIGRAM/KILOGRAM
     Route: 041
     Dates: start: 20180914, end: 20180914
  35. ABATACEPT [Suspect]
     Active Substance: ABATACEPT
     Dosage: 10 MILLIGRAM/KILOGRAM
     Route: 041
     Dates: start: 20190712
  36. PREDNISOLONE. [Suspect]
     Active Substance: PREDNISOLONE
     Dosage: 15 MILLIGRAM, QD
     Route: 048
     Dates: start: 20190323, end: 20190422
  37. ALFAROL [Concomitant]
     Active Substance: ALFACALCIDOL
     Indication: PROPHYLAXIS
     Dosage: 0.6 MILLILITER, QD
     Route: 048
     Dates: end: 20180914

REACTIONS (4)
  - Bronchitis [Recovered/Resolved]
  - Myositis [Recovered/Resolved]
  - Gastrooesophageal reflux disease [Recovering/Resolving]
  - Fungal oesophagitis [Recovering/Resolving]

NARRATIVE: CASE EVENT DATE: 20180815
